FAERS Safety Report 8986291 (Version 3)
Quarter: 2013Q1

REPORT INFORMATION
  Report Type: Report from Study
  Country: CA (occurrence: CA)
  Receive Date: 20121226
  Receipt Date: 20130125
  Transmission Date: 20140127
  Serious: Yes (Other)
  Sender: FDA-Public Use
  Company Number: CA-ROCHE-1171883

PATIENT
  Age: 55 Year
  Sex: Female
  Weight: 98.11 kg

DRUGS (5)
  1. OMALIZUMAB [Suspect]
     Indication: ASTHMA
     Route: 058
     Dates: start: 20091109
  2. OMALIZUMAB [Suspect]
     Route: 058
     Dates: start: 20071120
  3. OMALIZUMAB [Suspect]
     Route: 058
     Dates: start: 20100330
  4. OMALIZUMAB [Suspect]
     Route: 065
     Dates: start: 20071026
  5. OMALIZUMAB [Suspect]
     Route: 058
     Dates: start: 20090525

REACTIONS (7)
  - Asthma [Recovering/Resolving]
  - Blood pressure systolic increased [Unknown]
  - Nasopharyngitis [Unknown]
  - Productive cough [Not Recovered/Not Resolved]
  - Somnolence [Unknown]
  - Fatigue [Unknown]
  - Bronchitis [Unknown]
